FAERS Safety Report 21155864 (Version 1)
Quarter: 2022Q3

REPORT INFORMATION
  Report Type: Spontaneous
  Country: US (occurrence: None)
  Receive Date: 20220730
  Receipt Date: 20220730
  Transmission Date: 20221026
  Serious: No
  Sender: FDA-Public Use
  Company Number: None

PATIENT
  Age: 69 Year
  Sex: Male
  Weight: 94.8 kg

DRUGS (11)
  1. ABIRATERONE [Suspect]
     Active Substance: ABIRATERONE
     Indication: Prostate cancer
     Dosage: FREQUENCY : DAILY;?
     Route: 048
     Dates: start: 20220603
  2. ASPIRIN [Concomitant]
  3. BICALUTAMIDE [Concomitant]
  4. CITALOPRAM [Concomitant]
  5. IBUPROFEN [Concomitant]
  6. LISINOPRIL [Concomitant]
  7. NAPROXEN [Concomitant]
  8. PREDNISONE [Concomitant]
  9. ROSUVASTATIN [Concomitant]
  10. SUPREP [Concomitant]
  11. VOLTAREN [Concomitant]

REACTIONS (1)
  - Surgery [None]

NARRATIVE: CASE EVENT DATE: 20220627
